FAERS Safety Report 23434685 (Version 2)
Quarter: 2024Q3

REPORT INFORMATION
  Report Type: Spontaneous
  Country: US (occurrence: US)
  Receive Date: 20240123
  Receipt Date: 20240721
  Transmission Date: 20241017
  Serious: No
  Sender: NOVO NORDISK
  Company Number: US-NOVOPROD-1139037

PATIENT
  Sex: Female
  Weight: 57.143 kg

DRUGS (2)
  1. WEGOVY [Suspect]
     Active Substance: SEMAGLUTIDE
     Dosage: 1.7MG
     Route: 058
     Dates: start: 202305
  2. WEGOVY [Suspect]
     Active Substance: SEMAGLUTIDE
     Indication: Weight control
     Dosage: UNK
     Route: 058
     Dates: start: 202305

REACTIONS (5)
  - Increased appetite [Unknown]
  - Injection site pain [Unknown]
  - Injection site mass [Unknown]
  - Off label use [Unknown]
  - Wrong technique in product usage process [Unknown]
